FAERS Safety Report 14203390 (Version 4)
Quarter: 2018Q4

REPORT INFORMATION
  Report Type: Spontaneous
  Country: US (occurrence: US)
  Receive Date: 20171120
  Receipt Date: 20181102
  Transmission Date: 20190204
  Serious: Yes (Other)
  Sender: FDA-Public Use
  Company Number: US-AMGEN-USASP2017172960

PATIENT
  Age: 56 Year
  Sex: Female
  Weight: 43.54 kg

DRUGS (6)
  1. METHOTREXATE. [Concomitant]
     Active Substance: METHOTREXATE
     Indication: PSORIATIC ARTHROPATHY
     Dosage: UNK, QWK (INJECTION)
     Route: 065
     Dates: end: 20171031
  2. ORENCIA [Suspect]
     Active Substance: ABATACEPT
     Indication: RHEUMATOID ARTHRITIS
     Dosage: UNK
     Route: 065
  3. ENBREL [Suspect]
     Active Substance: ETANERCEPT
     Indication: RHEUMATOID ARTHRITIS
     Dosage: UNK
     Route: 065
  4. XELJANZ [Concomitant]
     Active Substance: TOFACITINIB CITRATE
     Dosage: 5 MG, BID
     Route: 048
  5. PLAQUENIL [Concomitant]
     Active Substance: HYDROXYCHLOROQUINE SULFATE
     Indication: RHEUMATOID ARTHRITIS
     Dosage: UNK
     Route: 065
  6. METHOTREXATE. [Concomitant]
     Active Substance: METHOTREXATE
     Indication: RHEUMATOID ARTHRITIS
     Dosage: UNK, QWK (PILLS)
     Route: 065

REACTIONS (9)
  - Memory impairment [Unknown]
  - Balance disorder [Not Recovered/Not Resolved]
  - Photophobia [Unknown]
  - Speech disorder [Unknown]
  - Tremor [Not Recovered/Not Resolved]
  - Drug hypersensitivity [Unknown]
  - Brain injury [Unknown]
  - Headache [Unknown]
  - Fall [Unknown]

NARRATIVE: CASE EVENT DATE: 200710
